FAERS Safety Report 9692954 (Version 1)
Quarter: 2013Q4

REPORT INFORMATION
  Report Type: Spontaneous
  Country: US (occurrence: US)
  Receive Date: 20131118
  Receipt Date: 20131118
  Transmission Date: 20140711
  Serious: No
  Sender: FDA-Public Use
  Company Number: US-GLAXOSMITHKLINE-A1045090A

PATIENT
  Sex: Female

DRUGS (3)
  1. COREG CR [Suspect]
     Indication: CARDIAC FAILURE
     Dosage: 40MG UNKNOWN
     Dates: start: 20080109
  2. COREG [Suspect]
     Indication: CARDIAC FAILURE
     Dosage: 25MG UNKNOWN
     Route: 065
  3. VESICARE [Suspect]
     Indication: PRODUCT USED FOR UNKNOWN INDICATION
     Dosage: 5MG UNKNOWN
     Route: 065

REACTIONS (2)
  - Malaise [Unknown]
  - Treatment noncompliance [Unknown]
